FAERS Safety Report 9536203 (Version 1)
Quarter: 2013Q3

REPORT INFORMATION
  Report Type: Spontaneous
  Country: US (occurrence: None)
  Receive Date: 20130917
  Receipt Date: 20130917
  Transmission Date: 20140515
  Serious: Yes (Disabling)
  Sender: FDA-Public Use
  Company Number: None

PATIENT
  Age: 70 Year
  Sex: Male
  Weight: 90.72 kg

DRUGS (11)
  1. DYMISTA [Suspect]
     Indication: SINUSITIS
     Dosage: 137 MCG/50 MCG PER SPRAY 1 SPRAY EACH NOSTRIL 2X DAY, 1 MORNING 1-EVENING, SPRAY INTO NOSE
     Route: 045
     Dates: start: 201303, end: 201304
  2. ALTACE [Concomitant]
  3. PRAVACHOL [Concomitant]
  4. FLOMAX [Concomitant]
  5. HCZT [Concomitant]
  6. ATENENOL [Concomitant]
  7. PROTONIX [Concomitant]
  8. RAMPIRIL [Concomitant]
  9. VITAMIN D [Concomitant]
  10. ASPIRIN [Concomitant]
  11. MOTRIN [Concomitant]

REACTIONS (2)
  - Anosmia [None]
  - Dysgeusia [None]
